FAERS Safety Report 4784319-0 (Version None)
Quarter: 2005Q3

REPORT INFORMATION
  Report Type: 
  Country: None (occurrence: None)
  Receive Date: 20050930
  Receipt Date: 20050413
  Transmission Date: 20060218
  Serious: Yes (Hospitalization)
  Sender: FDA-Public Use
  Company Number: 2005AP02330

PATIENT
  Age: 23954 Day
  Sex: Female
  Weight: 74 kg

DRUGS (5)
  1. IRESSA [Suspect]
     Indication: BREAST CANCER METASTATIC
     Route: 048
     Dates: start: 20050310
  2. FASLODEX [Suspect]
     Indication: BREAST CANCER METASTATIC
     Route: 030
     Dates: start: 20050310
  3. TRANSTEC [Concomitant]
     Indication: BONE PAIN
     Route: 062
     Dates: start: 20050210
  4. NOLOTIL [Concomitant]
     Indication: BONE PAIN
     Route: 048
     Dates: start: 20050210
  5. LIMOVAN [Concomitant]
     Indication: INSOMNIA
     Route: 048
     Dates: start: 20050101

REACTIONS (4)
  - ABDOMINAL PAIN UPPER [None]
  - NAUSEA [None]
  - OSTEOSYNTHESIS [None]
  - VOMITING [None]
